FAERS Safety Report 15738192 (Version 1)
Quarter: 2018Q4

REPORT INFORMATION
  Report Type: Spontaneous
  Country: GB (occurrence: GB)
  Receive Date: 20181219
  Receipt Date: 20181219
  Transmission Date: 20190205
  Serious: Yes (Other)
  Sender: FDA-Public Use
  Company Number: GB-TEVA-2018-GB-988248

PATIENT
  Age: 51 Year
  Sex: Female

DRUGS (6)
  1. KEPPRA [Concomitant]
     Active Substance: LEVETIRACETAM
  2. CIPROFLOXACIN. [Suspect]
     Active Substance: CIPROFLOXACIN
     Route: 065
  3. LAMOTRIGINE. [Concomitant]
     Active Substance: LAMOTRIGINE
  4. PHENYTOIN SODIUM. [Concomitant]
     Active Substance: PHENYTOIN SODIUM
  5. EPANUTIN [Concomitant]
     Active Substance: PHENYTOIN SODIUM
  6. LYRICA [Interacting]
     Active Substance: PREGABALIN
     Dosage: 50 MILLIGRAM DAILY; 25 MG, 2X/DAY
     Route: 065

REACTIONS (2)
  - Epilepsy [Unknown]
  - Potentiating drug interaction [Unknown]
